FAERS Safety Report 7776533-7 (Version None)
Quarter: 2011Q3

REPORT INFORMATION
  Report Type: 
  Country: None (occurrence: None)
  Receive Date: 20110922
  Receipt Date: 20110922
  Transmission Date: 20111222
  Serious: Yes (Life-Threatening, Disabling)
  Sender: FDA-Public Use
  Company Number: None

PATIENT
  Age: 81 Year
  Sex: Male
  Weight: 75.7507 kg

DRUGS (3)
  1. FLUTICASONE PROPIONATE [Suspect]
     Indication: MULTIPLE ALLERGIES
     Dosage: 2 SPRAYS EA. NOSTRIL EVERYDAY 049 (NOSE)
     Route: 045
     Dates: start: 20110823, end: 20110902
  2. FLUTICASONE PROPIONATE [Suspect]
     Indication: RHINITIS
     Dosage: 2 SPRAYS EA. NOSTRIL EVERYDAY 049 (NOSE)
     Route: 045
     Dates: start: 20110823, end: 20110902
  3. FLUNISOLIDE + TRIAMCINOLONE PHARMACIST:THESE ARE SIMILAR DRUGS + DR. A [Suspect]

REACTIONS (3)
  - DYSPNOEA [None]
  - MOVEMENT DISORDER [None]
  - BRONCHOSPASM [None]
